FAERS Safety Report 7415179-7 (Version None)
Quarter: 2011Q2

REPORT INFORMATION
  Report Type: 
  Country: None (occurrence: None)
  Receive Date: 20110414
  Receipt Date: 20110407
  Transmission Date: 20111010
  Serious: Yes (Other)
  Sender: FDA-Public Use
  Company Number: DE-PFIZER INC-2011035999

PATIENT
  Age: 48 Year
  Sex: Female

DRUGS (1)
  1. AROMASIN [Suspect]
     Indication: BREAST CANCER
     Dosage: UNK
     Dates: start: 20060101

REACTIONS (15)
  - DYSPEPSIA [None]
  - PSYCHOSOMATIC DISEASE [None]
  - BACK PAIN [None]
  - HYPERSENSITIVITY [None]
  - ASTHENIA [None]
  - GOITRE [None]
  - ASTHMA [None]
  - DRY MOUTH [None]
  - SPINAL DISORDER [None]
  - GLOSSODYNIA [None]
  - ABDOMINAL DISCOMFORT [None]
  - CARDIOVASCULAR DISORDER [None]
  - PARAESTHESIA ORAL [None]
  - CERVICOBRACHIAL SYNDROME [None]
  - ORAL DISORDER [None]
